FAERS Safety Report 6774045-0 (Version None)
Quarter: 2010Q2

REPORT INFORMATION
  Report Type: 
  Country: None (occurrence: None)
  Receive Date: 20100617
  Receipt Date: 20100603
  Transmission Date: 20101027
  Serious: Yes (Other)
  Sender: FDA-Public Use
  Company Number: PHHY2010IE38080

PATIENT
  Age: 32 Year
  Sex: Male

DRUGS (2)
  1. TOBI [Suspect]
     Indication: CYSTIC FIBROSIS
     Dosage: 300 MG, BID
     Dates: start: 20070701
  2. TOBI [Suspect]
     Indication: PSEUDOMONAS INFECTION

REACTIONS (1)
  - RENAL IMPAIRMENT [None]
